FAERS Safety Report 9405001 (Version 1)
Quarter: 2013Q3

REPORT INFORMATION
  Report Type: Spontaneous
  Country: DE (occurrence: None)
  Receive Date: 20130715
  Receipt Date: 20130715
  Transmission Date: 20140515
  Serious: Yes (Other)
  Sender: FDA-Public Use
  Company Number: TPG2013A00776

PATIENT
  Age: 76 Year
  Sex: Male

DRUGS (2)
  1. EDARBI (AZILSARTAN MEDOXOMIL) [Suspect]
     Indication: ESSENTIAL HYPERTENSION
     Dosage: 80MG (80 MG, 1 IN 1D)
     Route: 048
     Dates: start: 20120703
  2. PLATELET AGGREGATION INHIBITOR (PLATELET AGGREGATION INHIBITORS EXCL. HEPARIN) [Concomitant]

REACTIONS (2)
  - Cardiac failure [None]
  - Drug effect decreased [None]
